FAERS Safety Report 9920096 (Version 1)
Quarter: 2014Q1

REPORT INFORMATION
  Report Type: Spontaneous
  Country: US (occurrence: US)
  Receive Date: 20140224
  Receipt Date: 20140224
  Transmission Date: 20141002
  Serious: No
  Sender: FDA-Public Use
  Company Number: US-BAYER-2014-028929

PATIENT
  Age: 85 Year
  Sex: Male
  Weight: 79 kg

DRUGS (7)
  1. ALEVE CAPLET [Suspect]
     Indication: MYALGIA
     Dosage: 1-2 DF, QD
     Route: 048
     Dates: start: 201306, end: 20140221
  2. PANTOPRAZOLE [Concomitant]
  3. PRAVASTATIN [Concomitant]
  4. QUETIAPINE [Concomitant]
  5. FLUOXETINE [Concomitant]
  6. VITAMIN B12 [Concomitant]
  7. VITAMIN D3 [Concomitant]

REACTIONS (1)
  - Incorrect drug administration duration [None]
